FAERS Safety Report 7781447-2 (Version None)
Quarter: 2011Q3

REPORT INFORMATION
  Report Type: 
  Country: None (occurrence: None)
  Receive Date: 20110927
  Receipt Date: 20110919
  Transmission Date: 20111222
  Serious: Yes (Hospitalization)
  Sender: FDA-Public Use
  Company Number: US-CEPHALON-2011005028

PATIENT
  Sex: Female
  Weight: 98 kg

DRUGS (6)
  1. TOPAMAX [Concomitant]
  2. MORPHINE [Suspect]
  3. ABILIFY [Concomitant]
  4. OMEPRAZOLE [Concomitant]
  5. NUVIGIL [Suspect]
     Indication: LUNG DISORDER
     Route: 048
     Dates: start: 20110901
  6. METFORMIN HCL [Concomitant]

REACTIONS (3)
  - ACCIDENTAL OVERDOSE [None]
  - CHEST PAIN [None]
  - ANGINA PECTORIS [None]
